FAERS Safety Report 7536979-9 (Version None)
Quarter: 2011Q2

REPORT INFORMATION
  Report Type: 
  Country: None (occurrence: None)
  Receive Date: 20110609
  Receipt Date: 20110609
  Transmission Date: 20111010
  Serious: Yes (Hospitalization, Other)
  Sender: FDA-Public Use
  Company Number: US-JNJFOC-20110506114

PATIENT
  Sex: Female

DRUGS (2)
  1. METHADONE HCL [Concomitant]
     Route: 065
  2. NUCYNTA [Suspect]
     Indication: PRODUCT USED FOR UNKNOWN INDICATION
     Route: 048

REACTIONS (2)
  - INTESTINAL OBSTRUCTION [None]
  - HOSPITALISATION [None]
